FAERS Safety Report 7309689-0 (Version None)
Quarter: 2011Q1

REPORT INFORMATION
  Report Type: 
  Country: None (occurrence: None)
  Receive Date: 20110224
  Receipt Date: 20110217
  Transmission Date: 20110831
  Serious: Yes (Other)
  Sender: FDA-Public Use
  Company Number: US-BIOGENIDEC-2011BI006179

PATIENT
  Age: 29 Year
  Sex: Female

DRUGS (3)
  1. PEPCID AC [Concomitant]
  2. PRENATAL VITAMINS [Concomitant]
  3. TYSABRI [Suspect]
     Indication: MULTIPLE SCLEROSIS
     Route: 042
     Dates: start: 20080111, end: 20101209

REACTIONS (2)
  - PREGNANCY [None]
  - FOETAL HEART RATE DISORDER [None]
